FAERS Safety Report 19023093 (Version 2)
Quarter: 2021Q2

REPORT INFORMATION
  Report Type: Spontaneous
  Country: JP (occurrence: JP)
  Receive Date: 20210318
  Receipt Date: 20210622
  Transmission Date: 20210717
  Serious: Yes (Life-Threatening, Disabling, Other)
  Sender: FDA-Public Use
  Company Number: JP-ASTRAZENECA-2021A130593

PATIENT
  Age: 76 Year
  Sex: Male
  Weight: 69 kg

DRUGS (29)
  1. IMFINZI [Suspect]
     Active Substance: DURVALUMAB
     Indication: SMALL CELL LUNG CANCER
     Route: 041
     Dates: start: 20210129, end: 20210129
  2. IMFINZI [Suspect]
     Active Substance: DURVALUMAB
     Indication: SMALL CELL LUNG CANCER
     Dosage: 1500.0MG UNKNOWN
     Route: 041
     Dates: start: 20210422
  3. CARBOPLATIN. [Suspect]
     Active Substance: CARBOPLATIN
     Indication: SMALL CELL LUNG CANCER
     Dosage: AUC3.5438.0MG UNKNOWN
     Route: 041
     Dates: start: 20210224, end: 20210224
  4. ETOPOSIDE. [Suspect]
     Active Substance: ETOPOSIDE
     Indication: SMALL CELL LUNG CANCER
     Dosage: DOSE UNKNOWN, DAY 1, 2, AND 3 OF EACH CYCLE
     Route: 041
     Dates: start: 20210129, end: 20210131
  5. JANUVIA [Concomitant]
     Active Substance: SITAGLIPTIN PHOSPHATE
     Indication: TYPE 2 DIABETES MELLITUS
     Route: 048
  6. MIGLITOL. [Concomitant]
     Active Substance: MIGLITOL
     Route: 048
  7. TRAMAL [Concomitant]
     Active Substance: TRAMADOL
     Dosage: 1.0DF UNKNOWN
  8. VOGLIBOSE [Concomitant]
     Active Substance: VOGLIBOSE
     Indication: TYPE 2 DIABETES MELLITUS
     Route: 048
  9. ETOPOSIDE. [Suspect]
     Active Substance: ETOPOSIDE
     Indication: SMALL CELL LUNG CANCER
     Dosage: DAY 1, 2, AND 3 OF EACH CYCLE
     Route: 041
     Dates: start: 20210317, end: 20210319
  10. LANSOPRAZOLE OD [Suspect]
     Active Substance: LANSOPRAZOLE
     Indication: PROPHYLAXIS
     Dosage: AFTER BREAKFAST
     Route: 048
  11. DECADRON [Suspect]
     Active Substance: DEXAMETHASONE
     Indication: CACHEXIA
     Route: 048
     Dates: start: 20210126, end: 20210210
  12. GLIMEPIRIDE OD [Concomitant]
     Active Substance: GLIMEPIRIDE
     Indication: TYPE 2 DIABETES MELLITUS
     Route: 048
  13. IMFINZI [Suspect]
     Active Substance: DURVALUMAB
     Indication: SMALL CELL LUNG CANCER
     Route: 041
     Dates: start: 20210224, end: 20210317
  14. SYMPROIC [Concomitant]
     Active Substance: NALDEMEDINE
     Dosage: AFTER BREAKFAST
     Route: 048
  15. FUROSEMIDE. [Suspect]
     Active Substance: FUROSEMIDE
     Indication: CARDIAC FAILURE
     Route: 048
     Dates: start: 20210202
  16. TRICHLORMETHIAZIDE [Concomitant]
     Active Substance: TRICHLORMETHIAZIDE
     Dosage: AFTER BREAKFAST
  17. CARBOPLATIN. [Suspect]
     Active Substance: CARBOPLATIN
     Indication: SMALL CELL LUNG CANCER
     Dosage: AUC4442.4MG UNKNOWN
     Route: 041
     Dates: start: 20210129, end: 20210129
  18. ETOPOSIDE. [Suspect]
     Active Substance: ETOPOSIDE
     Indication: SMALL CELL LUNG CANCER
     Dosage: DAY 1, 2, AND 3 OF EACH CYCLE
     Route: 041
     Dates: start: 20210224, end: 20210226
  19. MAGMITT [Suspect]
     Active Substance: MAGNESIUM OXIDE
     Indication: CONSTIPATION
     Dosage: 330.0MG UNKNOWN
     Route: 048
     Dates: start: 20210202
  20. SILODOSIN OD [Concomitant]
     Dosage: AFTER BREAKFAST AND EVENING MEAL
  21. AMITIZA [Concomitant]
     Active Substance: LUBIPROSTONE
     Dosage: AFTER BREAKFAST AND EVENING MEAL
     Route: 048
  22. CELECOX [Suspect]
     Active Substance: CELECOXIB
     Indication: CANCER PAIN
     Route: 048
     Dates: start: 20210126
  23. TRAMCET [Suspect]
     Active Substance: ACETAMINOPHEN\TRAMADOL
     Indication: CANCER PAIN
     Route: 048
     Dates: start: 20210127
  24. MS CONTIN [Suspect]
     Active Substance: MORPHINE SULFATE
     Indication: CANCER PAIN
     Route: 048
     Dates: start: 20210203
  25. ROSUVASTATIN OD [Concomitant]
     Indication: DYSLIPIDAEMIA
     Route: 048
  26. DENOTAS [Concomitant]
     Active Substance: CALCIUM CARBONATE\CHOLECALCIFEROL\MAGNESIUM CARBONATE
     Route: 048
  27. AMLODIPINE [Concomitant]
     Active Substance: AMLODIPINE BESYLATE
     Indication: HYPERTENSION
  28. DENOSUMAB [Concomitant]
     Active Substance: DENOSUMAB
     Indication: METASTASES TO BONE
     Route: 030
  29. CARBOPLATIN. [Suspect]
     Active Substance: CARBOPLATIN
     Indication: SMALL CELL LUNG CANCER
     Dosage: AUC3.5450.0MG UNKNOWN
     Route: 041
     Dates: start: 20210317, end: 20210317

REACTIONS (10)
  - Febrile neutropenia [Recovering/Resolving]
  - Staphylococcal infection [Recovering/Resolving]
  - Sepsis [Unknown]
  - Abscess limb [Recovering/Resolving]
  - Constipation [Recovering/Resolving]
  - Cancer pain [Unknown]
  - Blood potassium increased [Recovering/Resolving]
  - Blood glucose increased [Recovering/Resolving]
  - Myelosuppression [Recovering/Resolving]
  - Tumour lysis syndrome [Recovering/Resolving]

NARRATIVE: CASE EVENT DATE: 2021
